FAERS Safety Report 5041279-5 (Version None)
Quarter: 2006Q2

REPORT INFORMATION
  Report Type: 
  Country: None (occurrence: None)
  Receive Date: 20060623
  Receipt Date: 20060612
  Transmission Date: 20061013
  Serious: Yes (Death, Hospitalization)
  Sender: FDA-Public Use
  Company Number: MEDI-0003422

PATIENT
  Age: 65 Year
  Sex: Male

DRUGS (17)
  1. ETHYOL [Suspect]
     Indication: CHEMOTHERAPY
     Dosage: INTRAVENOUS
     Route: 042
     Dates: start: 20050201
  2. ETHYOL [Suspect]
     Indication: RADIOTHERAPY
     Dosage: INTRAVENOUS
     Route: 042
     Dates: start: 20050201
  3. RADIATION THERAPY [Concomitant]
  4. CARBOPLATIN [Concomitant]
  5. TAXOL [Concomitant]
  6. ETOPOSIDE [Concomitant]
  7. LIPITOR [Concomitant]
  8. TIAZAC [Concomitant]
  9. PROTONIX [Concomitant]
  10. DIOVAN HCT [Concomitant]
  11. ATIVAN [Concomitant]
  12. MULTIVITAMIN [Concomitant]
  13. ASPIRIN [Concomitant]
  14. KYTRIL [Concomitant]
  15. HEPARIN [Concomitant]
  16. DECADRON [Concomitant]
  17. NEULASTA [Concomitant]

REACTIONS (6)
  - DIARRHOEA [None]
  - DYSPNOEA [None]
  - HYPOTENSION [None]
  - LUNG INFILTRATION [None]
  - NEUTROPENIA [None]
  - PYREXIA [None]
